FAERS Safety Report 23305357 (Version 1)
Quarter: 2023Q4

REPORT INFORMATION
  Report Type: Spontaneous
  Country: US (occurrence: None)
  Receive Date: 20231218
  Receipt Date: 20231218
  Transmission Date: 20240109
  Serious: No
  Sender: FDA-Public Use
  Company Number: 2023A275471

PATIENT
  Sex: Male

DRUGS (1)
  1. SYMBICORT [Suspect]
     Active Substance: BUDESONIDE\FORMOTEROL FUMARATE DIHYDRATE
     Indication: Cough
     Dosage: ONE OR TWO PUFFS TWO TIMES A DAY
     Route: 055

REACTIONS (3)
  - Laryngitis [Unknown]
  - Product use in unapproved indication [Unknown]
  - Drug ineffective [Unknown]
